FAERS Safety Report 11505231 (Version 1)
Quarter: 2015Q3

REPORT INFORMATION
  Report Type: Spontaneous
  Country: US (occurrence: US)
  Receive Date: 20150915
  Receipt Date: 20150915
  Transmission Date: 20151125
  Serious: No
  Sender: FDA-Public Use
  Company Number: US-ROCHE-799730

PATIENT
  Age: 53 Year
  Sex: Male

DRUGS (6)
  1. OXYCODONE [Concomitant]
     Active Substance: OXYCODONE
     Route: 065
  2. DURAGESIC [Concomitant]
     Active Substance: FENTANYL
     Route: 065
  3. RIBAVIRIN. [Suspect]
     Active Substance: RIBAVIRIN
     Indication: CHRONIC HEPATITIS C
     Dosage: 800 MG DAILY DIVIDED DOSES; INITIAL LENGTH OF THERAPY OF 12 WEEKS
     Route: 048
  4. TELAPREVIR [Suspect]
     Active Substance: TELAPREVIR
     Indication: CHRONIC HEPATITIS C
     Dosage: DRUG: INCIVEK (TELAPREVIR); INITIAL LENGTH OF THERAPY OF 12 WEEKS
     Route: 065
  5. PEGASYS [Suspect]
     Active Substance: PEGINTERFERON ALFA-2A
     Indication: CHRONIC HEPATITIS C
     Dosage: INITIAL LENGTH OF THERAPY OF 12 WEEKS
     Route: 058
  6. PERCOCET [Concomitant]
     Active Substance: ACETAMINOPHEN\OXYCODONE HYDROCHLORIDE
     Route: 065

REACTIONS (1)
  - Headache [Unknown]

NARRATIVE: CASE EVENT DATE: 20110829
